FAERS Safety Report 6075909-6 (Version None)
Quarter: 2009Q1

REPORT INFORMATION
  Report Type: 
  Country: None (occurrence: None)
  Receive Date: 20090209
  Receipt Date: 20090128
  Transmission Date: 20090719
  Serious: Yes (Hospitalization)
  Sender: FDA-Public Use
  Company Number: 1000003820

PATIENT
  Age: 96 Year
  Sex: Female

DRUGS (4)
  1. ESCITALOPRAM [Suspect]
     Dosage: 5 MG (5 MG, 1 IN 1 D), ORAL
     Route: 048
     Dates: start: 20081126, end: 20081204
  2. URBANYL (CAPSULES) [Concomitant]
  3. CORDARONE [Concomitant]
  4. MEDIATENSYL (CAPSULES) [Concomitant]

REACTIONS (7)
  - BLOOD CHLORIDE DECREASED [None]
  - CULTURE URINE POSITIVE [None]
  - ESCHERICHIA INFECTION [None]
  - FALL [None]
  - GENERAL PHYSICAL HEALTH DETERIORATION [None]
  - HEART RATE DECREASED [None]
  - HYPONATRAEMIA [None]
